FAERS Safety Report 6829279-3 (Version None)
Quarter: 2010Q3

REPORT INFORMATION
  Report Type: 
  Country: None (occurrence: None)
  Receive Date: 20100709
  Receipt Date: 20070307
  Transmission Date: 20110219
  Serious: No
  Sender: FDA-Public Use
  Company Number: US-PFIZER INC-2007019482

PATIENT
  Sex: Male
  Weight: 77.11 kg

DRUGS (4)
  1. CHANTIX [Suspect]
     Indication: SMOKING CESSATION THERAPY
     Route: 048
     Dates: start: 20060101
  2. ANTIDEPRESSANTS [Concomitant]
  3. PREDNISONE [Concomitant]
     Route: 048
  4. METHADONE [Concomitant]
     Indication: PAIN
     Route: 048

REACTIONS (2)
  - DIZZINESS [None]
  - FEELING ABNORMAL [None]
